FAERS Safety Report 13877965 (Version 1)
Quarter: 2017Q3

REPORT INFORMATION
  Report Type: Report from Study
  Country: US (occurrence: US)
  Receive Date: 20170817
  Receipt Date: 20170817
  Transmission Date: 20171127
  Serious: Yes (Hospitalization)
  Sender: FDA-Public Use
  Company Number: US-GILEAD-2017-0288459

PATIENT
  Age: 45 Year
  Sex: Female

DRUGS (3)
  1. ADCIRCA [Concomitant]
     Active Substance: TADALAFIL
  2. AMBRISENTAN [Suspect]
     Active Substance: AMBRISENTAN
     Indication: PRODUCT USED FOR UNKNOWN INDICATION
     Dosage: 5 MG, QD
     Route: 065
  3. XARELTO [Concomitant]
     Active Substance: RIVAROXABAN

REACTIONS (5)
  - Contusion [Unknown]
  - Rib fracture [Unknown]
  - Injury [Unknown]
  - Road traffic accident [Unknown]
  - Wound [Unknown]
